FAERS Safety Report 9238000 (Version 2)
Quarter: 2014Q1

REPORT INFORMATION
  Report Type: Spontaneous
  Country: US (occurrence: None)
  Receive Date: 20121106
  Receipt Date: 20130305
  Transmission Date: 20141002
  Serious: Yes (Other)
  Sender: FDA-Public Use
  Company Number: 1000037858

PATIENT
  Age: 88 Year
  Sex: Male

DRUGS (15)
  1. DALIRESP [Suspect]
     Indication: CHRONIC OBSTRUCTIVE PULMONARY DISEASE
     Route: 048
     Dates: start: 20120712, end: 201207
  2. DALIRESP [Suspect]
     Indication: BRONCHITIS CHRONIC
     Route: 048
     Dates: start: 20120712, end: 201207
  3. ADVAIR DISKUS [Concomitant]
  4. DUONEB (COMBIVENT) [Concomitant]
  5. METOPROLOL (METOPROLOL) [Concomitant]
  6. MUCINEX [Concomitant]
  7. LASIX (FUROSEMIDE) [Concomitant]
  8. MICARDIS (TELMISARTAN) [Concomitant]
  9. OMEPRAZOLE (OMEPRAZOLE) [Concomitant]
  10. PREDNISONE (PREDNISONE) [Concomitant]
  11. RECLAST (ZOLEDRONIC ACID) [Concomitant]
  12. BACTRIM (BACTRIM) [Concomitant]
  13. ZOCOR (SIMVASTATIN) [Concomitant]
  14. SPIRIVA (TIOTROPIUM BROMIDE) [Concomitant]
  15. NASONEX (MOMETASONE FUROATE) [Concomitant]

REACTIONS (1)
  - Suicidal ideation [None]
